FAERS Safety Report 16291340 (Version 1)
Quarter: 2019Q2

REPORT INFORMATION
  Report Type: Spontaneous
  Country: GB (occurrence: GB)
  Receive Date: 20190509
  Receipt Date: 20190509
  Transmission Date: 20190711
  Serious: Yes (Other)
  Sender: FDA-Public Use
  Company Number: GB-PFIZER INC-2019192421

PATIENT
  Age: 55 Year
  Sex: Female

DRUGS (1)
  1. LYRICA [Suspect]
     Active Substance: PREGABALIN
     Dosage: 600 MG, UNK

REACTIONS (11)
  - Disease recurrence [Unknown]
  - Emotional disorder [Unknown]
  - Somnolence [Unknown]
  - Pain [Unknown]
  - Disorientation [Unknown]
  - Confusional state [Unknown]
  - Oedema [Unknown]
  - Suicidal ideation [Unknown]
  - Brain injury [Unknown]
  - Drug resistance [Unknown]
  - Intentional product misuse [Unknown]
